FAERS Safety Report 16790222 (Version 11)
Quarter: 2020Q4

REPORT INFORMATION
  Report Type: Report from Study
  Country: DE (occurrence: DE)
  Receive Date: 20190910
  Receipt Date: 20201007
  Transmission Date: 20210113
  Serious: Yes (Hospitalization, Other)
  Sender: FDA-Public Use
  Company Number: PHHY2019DE186078

PATIENT
  Sex: Female
  Weight: 67.2 kg

DRUGS (5)
  1. KISQALI [Suspect]
     Active Substance: RIBOCICLIB
     Dosage: 600 MG, QD (SCHEMA 21 DAYS INTAKE, THAN 7 DAYS PAUSE)
     Route: 048
     Dates: end: 20190930
  2. CLINDAMYCIN. [Concomitant]
     Active Substance: CLINDAMYCIN
     Indication: TOOTH EXTRACTION
     Dosage: 600 MG, TID
     Route: 065
     Dates: start: 20191124, end: 20191130
  3. KISQALI [Suspect]
     Active Substance: RIBOCICLIB
     Indication: BREAST CANCER METASTATIC
     Dosage: 600 MG, QD
     Route: 048
     Dates: start: 20190722
  4. FULVESTRANT. [Suspect]
     Active Substance: FULVESTRANT
     Indication: BREAST CANCER METASTATIC
     Dosage: 500 MG, QMO (DAILY DOSE)
     Route: 030
     Dates: start: 20190719
  5. FULVESTRANT. [Suspect]
     Active Substance: FULVESTRANT
     Dosage: 500 MG, Q4W
     Route: 030

REACTIONS (11)
  - Blood creatinine increased [Recovering/Resolving]
  - Nausea [Recovered/Resolved]
  - Dyspnoea [Recovering/Resolving]
  - Blood uric acid increased [Recovering/Resolving]
  - Pleural effusion [Recovering/Resolving]
  - Alanine aminotransferase increased [Recovering/Resolving]
  - Aspartate aminotransferase increased [Recovering/Resolving]
  - Nausea [Recovering/Resolving]
  - Weight decreased [Unknown]
  - Dental caries [Recovered/Resolved]
  - Blood urea increased [Recovering/Resolving]

NARRATIVE: CASE EVENT DATE: 20190722
